FAERS Safety Report 13036190 (Version 1)
Quarter: 2016Q4

REPORT INFORMATION
  Report Type: Spontaneous
  Country: US (occurrence: US)
  Receive Date: 20161216
  Receipt Date: 20161216
  Transmission Date: 20170207
  Serious: No
  Sender: FDA-Public Use
  Company Number: US-PERRIGO-16US019677

PATIENT
  Age: 70 Year
  Sex: Female
  Weight: 68.27 kg

DRUGS (2)
  1. BACITRACIN. [Suspect]
     Active Substance: BACITRACIN
     Indication: DRY EYE
     Dosage: 1  THIN APPLICATION ACROSS EYELID, QD, AT BEDTIME
     Route: 061
     Dates: start: 20160824, end: 20160825
  2. BACITRACIN. [Suspect]
     Active Substance: BACITRACIN
     Indication: EYE PRURITUS

REACTIONS (6)
  - Eye irritation [Not Recovered/Not Resolved]
  - Condition aggravated [Not Recovered/Not Resolved]
  - Off label use [Recovered/Resolved]
  - Application site erythema [Not Recovered/Not Resolved]
  - Drug administered at inappropriate site [Recovered/Resolved]
  - Lacrimation increased [Not Recovered/Not Resolved]

NARRATIVE: CASE EVENT DATE: 20160824
